FAERS Safety Report 13358066 (Version 1)
Quarter: 2017Q1

REPORT INFORMATION
  Report Type: Spontaneous
  Country: DE (occurrence: DE)
  Receive Date: 20170322
  Receipt Date: 20170322
  Transmission Date: 20170429
  Serious: Yes (Hospitalization, Other)
  Sender: FDA-Public Use
  Company Number: DE-ACCORD-049211

PATIENT
  Age: 1 Day
  Sex: Male
  Weight: 3.69 kg

DRUGS (4)
  1. AMOXICILLIN. [Concomitant]
     Active Substance: AMOXICILLIN
     Indication: STREPTOCOCCUS TEST POSITIVE
     Dosage: IN THE END OF PREGNANCY
     Route: 064
     Dates: start: 20161231, end: 20161231
  2. QUETIAPINE. [Suspect]
     Active Substance: QUETIAPINE
     Indication: DEPRESSION
     Dosage: THROUGHOUT PREGNANCY,??300 MG/D
     Route: 064
     Dates: start: 20160322, end: 20161231
  3. VENLAFAXINE/VENLAFAXINE HYDROCHLORIDE [Suspect]
     Active Substance: VENLAFAXINE HYDROCHLORIDE
     Indication: DEPRESSION
     Dosage: 150 MG/D,??THROUGHOUT PREGNANCY
     Route: 064
     Dates: start: 20160322, end: 20161231
  4. L-THYROXIN [Concomitant]
     Active Substance: LEVOTHYROXINE SODIUM
     Indication: HYPOTHYROIDISM
     Dosage: 125 UG/D,??THROUGHOUT PREGNANCY
     Route: 064
     Dates: start: 20160322, end: 20161231

REACTIONS (3)
  - Infantile apnoea [Recovered/Resolved]
  - Foetal exposure during pregnancy [Unknown]
  - Cyanosis neonatal [Recovered/Resolved]

NARRATIVE: CASE EVENT DATE: 20161231
